FAERS Safety Report 7671794-7 (Version None)
Quarter: 2011Q3

REPORT INFORMATION
  Report Type: 
  Country: None (occurrence: None)
  Receive Date: 20110809
  Receipt Date: 20110725
  Transmission Date: 20111222
  Serious: Yes (Other)
  Sender: FDA-Public Use
  Company Number: US-ARROW GEN-2011-11563

PATIENT
  Sex: Male
  Weight: 109 kg

DRUGS (2)
  1. FENTANYL-25 [Suspect]
     Indication: PAIN
     Dosage: 1 PATCH, Q72H
     Route: 062
     Dates: start: 20110713, end: 20110714
  2. OXYCODONE HCL [Concomitant]
     Indication: PAIN
     Dosage: UNK
     Route: 048
     Dates: start: 20110601

REACTIONS (3)
  - HYPOPNOEA [None]
  - CYANOSIS [None]
  - DEPRESSED LEVEL OF CONSCIOUSNESS [None]
